FAERS Safety Report 8990704 (Version 1)
Quarter: 2012Q4

REPORT INFORMATION
  Report Type: Spontaneous
  Country: US (occurrence: None)
  Receive Date: 20121226
  Receipt Date: 20121226
  Transmission Date: 20130627
  Serious: Yes (Hospitalization)
  Sender: FDA-Public Use
  Company Number: None

PATIENT
  Age: 84 Year
  Sex: Male
  Weight: 90.9 kg

DRUGS (1)
  1. ROCURONIUM BROMIDE [Suspect]
     Dosage: 50 MG ONCE IV
     Route: 042
     Dates: start: 20121213, end: 20121213

REACTIONS (3)
  - Bronchospasm [None]
  - Hypotension [None]
  - Anaphylactic reaction [None]
